FAERS Safety Report 9442668 (Version 2)
Quarter: 2014Q1

REPORT INFORMATION
  Report Type: Spontaneous
  Country: FR (occurrence: FR)
  Receive Date: 20130806
  Receipt Date: 20140113
  Transmission Date: 20141002
  Serious: Yes (Life-Threatening, Hospitalization)
  Sender: FDA-Public Use
  Company Number: FR-009507513-1307FRA015592

PATIENT
  Age: 69 Year
  Sex: Male

DRUGS (5)
  1. ESMERON [Suspect]
     Indication: INDUCTION OF ANAESTHESIA
     Dosage: 50 MG, ONCE
     Route: 042
     Dates: start: 20130408, end: 20130408
  2. ATARAX (HYDROXYZINE HYDROCHLORIDE) [Suspect]
     Indication: PREMEDICATION
     Dosage: UNK
     Route: 048
     Dates: start: 20130408, end: 20130408
  3. MIDAZOLAM [Suspect]
     Indication: INDUCTION OF ANAESTHESIA
     Dosage: 2 MG, ONCE
     Route: 042
     Dates: start: 20130408, end: 20130408
  4. ULTIVA [Suspect]
     Indication: INDUCTION OF ANAESTHESIA
     Dosage: 844 MICROGRAM, ONCE
     Route: 042
     Dates: start: 20130408, end: 20130408
  5. HYPNOMIDATE [Suspect]
     Indication: INDUCTION OF ANAESTHESIA
     Dosage: 22 MG, ONCE
     Route: 042
     Dates: start: 20130408, end: 20130408

REACTIONS (1)
  - Type I hypersensitivity [Recovered/Resolved]
